FAERS Safety Report 5564661-6 (Version None)
Quarter: 2007Q4

REPORT INFORMATION
  Report Type: 
  Country: None (occurrence: None)
  Receive Date: 20071218
  Receipt Date: 20071212
  Transmission Date: 20080405
  Serious: Yes (Other)
  Sender: FDA-Public Use
  Company Number: US-ASTRAZENECA-2007UW24434

PATIENT
  Age: 555 Month
  Sex: Female
  Weight: 134.1 kg

DRUGS (3)
  1. SEROQUEL [Suspect]
     Indication: ANXIETY
     Dosage: VARIOUS
     Route: 048
     Dates: start: 20030101, end: 20050101
  2. TEARATOL [Concomitant]
  3. EFFEXOR [Concomitant]

REACTIONS (3)
  - BLOOD CHOLESTEROL INCREASED [None]
  - DIABETES MELLITUS [None]
  - NEUROPATHY [None]
